FAERS Safety Report 7191878-X (Version None)
Quarter: 2010Q4

REPORT INFORMATION
  Report Type: 
  Country: None (occurrence: None)
  Receive Date: 20101223
  Receipt Date: 20100820
  Transmission Date: 20110411
  Serious: Yes (Hospitalization)
  Sender: FDA-Public Use
  Company Number: US-AMGEN-KDL432821

PATIENT

DRUGS (2)
  1. ENBREL [Suspect]
     Indication: RHEUMATOID ARTHRITIS
     Dosage: UNK UNK, UNK
     Dates: end: 20090801
  2. ENBREL [Suspect]
     Indication: PSORIASIS

REACTIONS (3)
  - BONE PAIN [None]
  - FURUNCLE [None]
  - PSORIASIS [None]
